FAERS Safety Report 7452114-X (Version None)
Quarter: 2011Q2

REPORT INFORMATION
  Report Type: 
  Country: None (occurrence: None)
  Receive Date: 20110502
  Receipt Date: 20110427
  Transmission Date: 20111010
  Serious: Yes (Death, Other)
  Sender: FDA-Public Use
  Company Number: JP-PFIZER INC-2009297455

PATIENT
  Age: 29 Year
  Sex: Male

DRUGS (7)
  1. NOVASTAN [Suspect]
     Dosage: 0.2 MCG/KG/MIN
     Route: 041
     Dates: start: 20091104, end: 20091105
  2. NOVASTAN [Suspect]
     Dosage: 0.2 MCG/KG/MIN
     Route: 041
     Dates: start: 20091105, end: 20091106
  3. WARFARIN POTASSIUM [Concomitant]
     Dosage: 2 MG, DAILY
     Route: 048
     Dates: start: 20091014, end: 20091015
  4. NOVASTAN [Suspect]
     Dosage: 0.4 MCG/KG/MIN
     Route: 041
     Dates: start: 20091104, end: 20091104
  5. HEPARIN SODIUM [Concomitant]
     Dosage: UNK
     Route: 051
     Dates: start: 20091013
  6. NOVASTAN [Suspect]
     Indication: HEPARIN-INDUCED THROMBOCYTOPENIA
     Dosage: 0.2 MCG/KG/MIN
     Route: 041
     Dates: start: 20091102, end: 20091104
  7. WARFARIN POTASSIUM [Concomitant]
     Dosage: 2 MG, DAILY
     Route: 048
     Dates: start: 20091017, end: 20091021

REACTIONS (3)
  - ANAEMIA [None]
  - ACTIVATED PARTIAL THROMBOPLASTIN TIME PROLONGED [None]
  - CEREBRAL INFARCTION [None]
